FAERS Safety Report 16233328 (Version 1)
Quarter: 2019Q2

REPORT INFORMATION
  Report Type: Report from Study
  Country: None (occurrence: FR)
  Receive Date: 20190424
  Receipt Date: 20190424
  Transmission Date: 20190711
  Serious: Yes (Hospitalization)
  Sender: FDA-Public Use
  Company Number: FR-ABBVIE-19S-056-2752655-00

PATIENT
  Sex: Female

DRUGS (1)
  1. DUODOPA [Suspect]
     Active Substance: CARBIDOPA\LEVODOPA
     Indication: PARKINSON^S DISEASE
     Dosage: CONTINOUS FLOW RATE DURING THE DAY??: 3.9 ML/H
     Route: 050
     Dates: start: 20170701

REACTIONS (4)
  - Freezing phenomenon [Not Recovered/Not Resolved]
  - Dyskinesia [Not Recovered/Not Resolved]
  - Loss of personal independence in daily activities [Not Recovered/Not Resolved]
  - Mobility decreased [Not Recovered/Not Resolved]
